FAERS Safety Report 4691304-6 (Version None)
Quarter: 2005Q2

REPORT INFORMATION
  Report Type: 
  Country: None (occurrence: None)
  Receive Date: 20050614
  Receipt Date: 20050531
  Transmission Date: 20051028
  Serious: Yes (Hospitalization, Other)
  Sender: FDA-Public Use
  Company Number: 2005081483

PATIENT
  Sex: Male
  Weight: 97.5234 kg

DRUGS (7)
  1. CELEBREX [Suspect]
     Indication: ARTHROPATHY
     Dosage: 200 MG (200 MG, 1 IN 1 D), ORAL
     Route: 048
  2. ATENOLOL [Concomitant]
  3. FUROSEMIDE [Concomitant]
  4. LIPITOR [Concomitant]
  5. NIACIN [Concomitant]
  6. ASPIRIN [Concomitant]
  7. QUININE (QUININE0 [Concomitant]

REACTIONS (1)
  - OSTEOARTHRITIS [None]
